FAERS Safety Report 7777313-9 (Version None)
Quarter: 2011Q3

REPORT INFORMATION
  Report Type: 
  Country: None (occurrence: None)
  Receive Date: 20110926
  Receipt Date: 20110920
  Transmission Date: 20111222
  Serious: Yes (Death, Hospitalization)
  Sender: FDA-Public Use
  Company Number: PHHY2011CR83387

PATIENT
  Age: 76 Year
  Sex: Female

DRUGS (1)
  1. DIOVAN HCT [Suspect]
     Indication: HYPERTENSION
     Dosage: 1 DF, (VALSARTAN 80 MG, HYDROCHLOROTHIAZIDE 12.5 MG), UNK

REACTIONS (1)
  - COLON CANCER [None]
